FAERS Safety Report 9744304 (Version 1)
Quarter: 2013Q4

REPORT INFORMATION
  Report Type: Spontaneous
  Country: US (occurrence: US)
  Receive Date: 20131210
  Receipt Date: 20131210
  Transmission Date: 20140711
  Serious: Yes (Hospitalization)
  Sender: FDA-Public Use
  Company Number: US-B.I. PHARMACEUTICALS,INC./RIDGEFIELD-2013-BI-40436BP

PATIENT
  Sex: Female

DRUGS (2)
  1. SPIRIVA [Suspect]
     Indication: CHRONIC OBSTRUCTIVE PULMONARY DISEASE
     Dosage: 18 MCG
     Route: 055
     Dates: start: 2010
  2. RECLAST [Concomitant]
     Indication: OSTEOPOROSIS
     Dosage: FORMULATION :INTRAVENOUS
     Route: 042

REACTIONS (2)
  - Pneumonia [Recovered/Resolved]
  - Arthritis [Not Recovered/Not Resolved]
